FAERS Safety Report 5552891-9 (Version None)
Quarter: 2007Q4

REPORT INFORMATION
  Report Type: 
  Country: None (occurrence: None)
  Receive Date: 20071211
  Receipt Date: 20071203
  Transmission Date: 20080405
  Serious: Yes (Other)
  Sender: FDA-Public Use
  Company Number: 2007336707

PATIENT
  Age: 75 Year
  Sex: Female
  Weight: 54.4316 kg

DRUGS (4)
  1. NEOSPORIN [Suspect]
     Indication: WOUND
     Dosage: ENOUGH TO FILL PUNCTURE WOULD 2 TIMES, TOPICAL
     Route: 061
     Dates: start: 20071101, end: 20071125
  2. ZITHROMAX [Concomitant]
  3. BACTRIM [Concomitant]
  4. LEVAQUIN [Concomitant]

REACTIONS (5)
  - BLINDNESS UNILATERAL [None]
  - BLOOD PRESSURE INCREASED [None]
  - PRURITUS [None]
  - SKIN EXFOLIATION [None]
  - SKIN HAEMORRHAGE [None]
